FAERS Safety Report 17664468 (Version 1)
Quarter: 2020Q2

REPORT INFORMATION
  Report Type: Spontaneous
  Country: TR (occurrence: TR)
  Receive Date: 20200414
  Receipt Date: 20200414
  Transmission Date: 20200713
  Serious: Yes (Other)
  Sender: FDA-Public Use
  Company Number: TR-SUN PHARMACEUTICAL INDUSTRIES LTD-2020RR-243959

PATIENT
  Sex: Female

DRUGS (4)
  1. CEFTRIAXONE. [Suspect]
     Active Substance: CEFTRIAXONE
     Indication: INFECTIOUS PLEURAL EFFUSION
     Dosage: 100 MILLIGRAM/KILOGRAM, DAILY, 2 DOSES
     Route: 042
  2. OSELTAMIVIR [Suspect]
     Active Substance: OSELTAMIVIR
     Indication: INFECTIOUS PLEURAL EFFUSION
     Dosage: 2 X 45 MG
     Route: 048
  3. VANCOMYCIN HYDROCHLORIDE. [Suspect]
     Active Substance: VANCOMYCIN HYDROCHLORIDE
     Indication: INFECTIOUS PLEURAL EFFUSION
     Dosage: 60 MILLIGRAM/KILOGRAM, DAILY, 4 DOSES
     Route: 042
  4. CLINDAMYCIN. [Suspect]
     Active Substance: CLINDAMYCIN
     Indication: INFECTIOUS PLEURAL EFFUSION
     Dosage: 40 MILLIGRAM/KILOGRAM, DAILY, 4 DOSES
     Route: 042

REACTIONS (2)
  - Respiratory distress [Recovering/Resolving]
  - Pathogen resistance [Unknown]
